FAERS Safety Report 12290434 (Version 2)
Quarter: 2020Q3

REPORT INFORMATION
  Report Type: Spontaneous
  Country: ZA (occurrence: ZA)
  Receive Date: 20160421
  Receipt Date: 20200706
  Transmission Date: 20201102
  Serious: Yes (Other)
  Sender: FDA-Public Use
  Company Number: ZA-CIPLA LTD.-2016ZA03710

PATIENT

DRUGS (9)
  1. ETHIONAMIDE [Concomitant]
     Active Substance: ETHIONAMIDE
     Indication: TUBERCULOSIS
     Dosage: 15?20 MG/KG, QD
     Route: 065
     Dates: start: 2014
  2. TERIZIDONE [Concomitant]
     Active Substance: TERIZIDONE
     Indication: TUBERCULOSIS
     Dosage: 15?20 MG/KG, QD
     Route: 065
     Dates: start: 2014
  3. ETHAMBUTOL [Concomitant]
     Active Substance: ETHAMBUTOL HYDROCHLORIDE
     Indication: TUBERCULOSIS
     Dosage: 20?25 MG/KG, QD
     Route: 065
     Dates: start: 2014
  4. PYRIDOXINE [Concomitant]
     Active Substance: PYRIDOXINE
     Indication: TUBERCULOSIS
     Dosage: 50 MILLIGRAM, QD
     Route: 065
     Dates: start: 2014
  5. AMIKACIN. [Concomitant]
     Active Substance: AMIKACIN
     Indication: TUBERCULOSIS
     Dosage: 15 MILLIGRAM/KILOGRAM, QD
     Route: 065
     Dates: start: 2014
  6. ISONIAZID. [Concomitant]
     Active Substance: ISONIAZID
     Indication: TUBERCULOSIS
     Dosage: 15?20 MG/KG, QD
     Route: 065
     Dates: start: 2014
  7. LEVOFLOXACIN. [Suspect]
     Active Substance: LEVOFLOXACIN
     Indication: TUBERCULOSIS
     Dosage: 15?20 MG/KG, QD
     Route: 065
     Dates: start: 2014, end: 2014
  8. PYRAZINAMIDE. [Concomitant]
     Active Substance: PYRAZINAMIDE
     Indication: TUBERCULOSIS
     Dosage: 30?40 MG/KG, QD
     Route: 065
     Dates: start: 2014
  9. ISONIAZID. [Concomitant]
     Active Substance: ISONIAZID
     Dosage: 10?15 MG/KG/DAY, QD
     Route: 065

REACTIONS (2)
  - Intracranial pressure increased [Recovered/Resolved]
  - Papilloedema [Recovered/Resolved]

NARRATIVE: CASE EVENT DATE: 20140918
